FAERS Safety Report 14096765 (Version 1)
Quarter: 2017Q4

REPORT INFORMATION
  Report Type: Report from Study
  Country: DE (occurrence: DE)
  Receive Date: 20171017
  Receipt Date: 20171017
  Transmission Date: 20180321
  Serious: Yes (Hospitalization)
  Sender: FDA-Public Use
  Company Number: DE-UCBSA-2017001332

PATIENT
  Age: 67 Year
  Sex: Male

DRUGS (8)
  1. MADOPAR LT [Concomitant]
     Active Substance: BENSERAZIDE HYDROCHLORIDE\LEVODOPA
     Indication: PRODUCT USED FOR UNKNOWN INDICATION
     Dosage: 100/25 MG TAB
  2. ALLOPURINOL. [Concomitant]
     Active Substance: ALLOPURINOL
     Indication: BLOOD URIC ACID
     Dosage: 300 MG, ONCE DAILY (QD)
  3. ROTIGOTINE [Suspect]
     Active Substance: ROTIGOTINE
     Indication: PARKINSON^S DISEASE
     Dosage: 4 MG, ONCE DAILY (QD)
     Dates: start: 20160414
  4. ROTIGOTINE [Suspect]
     Active Substance: ROTIGOTINE
     Dosage: 4 MG, ONCE DAILY (QD)
     Dates: end: 20170901
  5. DUODART [Concomitant]
     Active Substance: DUTASTERIDE\TAMSULOSIN
     Indication: DYSURIA
     Dosage: 0,5 MG/0,4 MG TAB, 1X EVENING
  6. ROTIGOTINE [Suspect]
     Active Substance: ROTIGOTINE
     Dosage: DAILY DOSE: 6 MG
     Dates: end: 2016
  7. LEVODOPA/CARBIDOPA [Concomitant]
     Active Substance: CARBIDOPA\LEVODOPA
     Indication: PRODUCT USED FOR UNKNOWN INDICATION
     Dosage: 175MG/ 43,75 MG/ 200 MG TAB, 4 X DAILY
  8. IRBESARTAN. [Concomitant]
     Active Substance: IRBESARTAN
     Indication: HYPERTONIA
     Dosage: 150 MG TAB, 1/2 TAB, DAILY 75 MG

REACTIONS (7)
  - Hyperhidrosis [Not Recovered/Not Resolved]
  - Disturbance in attention [Unknown]
  - Fall [Not Recovered/Not Resolved]
  - Product adhesion issue [Unknown]
  - Mental impairment [Unknown]
  - Rib fracture [Not Recovered/Not Resolved]
  - Dizziness [Unknown]

NARRATIVE: CASE EVENT DATE: 2016
